FAERS Safety Report 10016887 (Version 3)
Quarter: 2014Q2

REPORT INFORMATION
  Report Type: Spontaneous
  Country: JP (occurrence: JP)
  Receive Date: 20140318
  Receipt Date: 20140516
  Transmission Date: 20141212
  Serious: Yes (Death, Other)
  Sender: FDA-Public Use
  Company Number: JP-009507513-1403JPN007490

PATIENT
  Sex: 0

DRUGS (2)
  1. ESLAX [Suspect]
     Dosage: DAILY DOSE UNKNOWN
     Route: 042
  2. PRECEDEX [Suspect]
     Dosage: DAILY DOSE UNKNOWN
     Route: 042

REACTIONS (4)
  - Necrosis [Unknown]
  - Death [Fatal]
  - Infusion site extravasation [Unknown]
  - Erythema [Unknown]
